FAERS Safety Report 4576069-0 (Version None)
Quarter: 2005Q1

REPORT INFORMATION
  Report Type: 
  Country: None (occurrence: None)
  Receive Date: 20050204
  Receipt Date: 20050126
  Transmission Date: 20050727
  Serious: Yes (Other)
  Sender: FDA-Public Use
  Company Number: 2004104710

PATIENT
  Sex: Female
  Weight: 73 kg

DRUGS (3)
  1. NEURONTIN [Suspect]
     Indication: PARTIAL SEIZURES
     Dosage: 100 MG (100 MG , 1 IN 1 D) , ORAL
     Route: 048
     Dates: start: 20041125, end: 20041202
  2. VALPROATE SODIUM [Suspect]
     Indication: CONVULSION
     Dosage: ORAL
     Route: 048
  3. CARBAMAZEPINE [Suspect]
     Indication: CONVULSION
     Dosage: 800 MG(400 MG, 2 IN 1 D), ORAL
     Route: 048

REACTIONS (2)
  - GRAND MAL CONVULSION [None]
  - INCONTINENCE [None]
